FAERS Safety Report 14781882 (Version 2)
Quarter: 2018Q2

REPORT INFORMATION
  Report Type: Report from Study
  Country: None (occurrence: IT)
  Receive Date: 20180420
  Receipt Date: 20180503
  Transmission Date: 20180711
  Serious: Yes (Hospitalization)
  Sender: FDA-Public Use
  Company Number: IT-ABBVIE-18K-083-2328558-00

PATIENT
  Age: 67 Year
  Sex: Male

DRUGS (1)
  1. DUODOPA [Suspect]
     Active Substance: CARBIDOPA\LEVODOPA
     Indication: PARKINSON^S DISEASE
     Dosage: MD 12+3??CR 4.2??ED 2.5
     Route: 050
     Dates: start: 20150302, end: 20180502

REACTIONS (2)
  - General physical health deterioration [Unknown]
  - Embedded device [Unknown]

NARRATIVE: CASE EVENT DATE: 201804
